FAERS Safety Report 7416218-X (Version None)
Quarter: 2011Q2

REPORT INFORMATION
  Report Type: 
  Country: None (occurrence: None)
  Receive Date: 20110414
  Receipt Date: 20110411
  Transmission Date: 20111010
  Serious: Yes (Other)
  Sender: FDA-Public Use
  Company Number: ES-AMGEN-ESPSP2011019192

PATIENT
  Age: 76 Year
  Sex: Female

DRUGS (1)
  1. NPLATE [Suspect]
     Indication: THROMBOCYTOPENIA
     Dosage: 250 A?G, UNK
     Route: 058
     Dates: start: 20100824, end: 20101117

REACTIONS (2)
  - MEGAKARYOCYTES ABNORMAL [None]
  - LEUKOERYTHROBLASTOSIS [None]
